FAERS Safety Report 8159426-5 (Version None)
Quarter: 2012Q1

REPORT INFORMATION
  Report Type: 
  Country: None (occurrence: None)
  Receive Date: 20120223
  Receipt Date: 20120216
  Transmission Date: 20120608
  Serious: Yes (Death)
  Sender: FDA-Public Use
  Company Number: US-PFIZER INC-US-WYE-H02059708

PATIENT
  Age: 29 Year
  Sex: Female

DRUGS (4)
  1. CLONAZEPAM [Suspect]
     Dosage: UNSPECIFIED
  2. BUPROPION HCL [Suspect]
     Dosage: UNSPECIFIED
  3. GABAPENTIN [Suspect]
     Dosage: UNSPECIFIED
  4. PROPRANOLOL HCL [Suspect]
     Dosage: UNSPECIFIED
     Dates: start: 20060101

REACTIONS (2)
  - INTENTIONAL OVERDOSE [None]
  - COMPLETED SUICIDE [None]
